FAERS Safety Report 9536368 (Version 1)
Quarter: 2013Q2

REPORT INFORMATION
  Report Type: Spontaneous
  Country: US (occurrence: None)
  Receive Date: 20130507
  Receipt Date: 20130507
  Transmission Date: 20140414
  Serious: Yes (Other)
  Sender: FDA-Public Use
  Company Number: PHEH2012US023770

PATIENT
  Age: 55 Year
  Sex: Female

DRUGS (7)
  1. AFINITOR [Suspect]
     Indication: TUBEROUS SCLEROSIS
     Route: 048
     Dates: start: 20121105
  2. AFINITOR [Suspect]
     Indication: ANGIOMYOLIPOMA
     Route: 048
     Dates: start: 20121105
  3. ALPRAZOLAM [Concomitant]
  4. CELEXA (CITALOPRAM HYDROBROMIDE) [Concomitant]
  5. ANTARA (FENOFIBRATE) [Concomitant]
  6. ZINC [Concomitant]
  7. ZIAC (BISOPROLOL FUMARATE, HYDROCHLOROTHIAZIDE) [Concomitant]

REACTIONS (6)
  - Blood pressure increased [None]
  - Epistaxis [None]
  - Rash pruritic [None]
  - Headache [None]
  - Fatigue [None]
  - Dry mouth [None]
